FAERS Safety Report 25152727 (Version 1)
Quarter: 2025Q2

REPORT INFORMATION
  Report Type: Spontaneous
  Country: US (occurrence: US)
  Receive Date: 20250403
  Receipt Date: 20250403
  Transmission Date: 20250717
  Serious: No
  Sender: SANOFI AVENTIS
  Company Number: US-SA-2025SA093636

PATIENT
  Age: 52 Year
  Sex: Female

DRUGS (9)
  1. KEVZARA [Suspect]
     Active Substance: SARILUMAB
     Indication: Rheumatoid arthritis
     Dosage: 150 MG, QOW
     Route: 058
     Dates: start: 20250123
  2. CHLORTHALIDONE [Concomitant]
     Active Substance: CHLORTHALIDONE
  3. METOPROLOL SUCCINATE [Concomitant]
     Active Substance: METOPROLOL SUCCINATE
  4. GLIMEPIRIDE [Concomitant]
     Active Substance: GLIMEPIRIDE
  5. LOSARTAN [Concomitant]
     Active Substance: LOSARTAN
  6. ATORVASTATIN [Concomitant]
     Active Substance: ATORVASTATIN
  7. LORATADINE [Concomitant]
     Active Substance: LORATADINE
  8. PREDNISONE [Concomitant]
     Active Substance: PREDNISONE
  9. METFORMIN [Concomitant]
     Active Substance: METFORMIN HYDROCHLORIDE

REACTIONS (3)
  - Nausea [Unknown]
  - Vomiting [Unknown]
  - Injection site pain [Unknown]

NARRATIVE: CASE EVENT DATE: 20250101
